FAERS Safety Report 5264797-3 (Version None)
Quarter: 2007Q1

REPORT INFORMATION
  Report Type: 
  Country: None (occurrence: None)
  Receive Date: 20070314
  Receipt Date: 20070227
  Transmission Date: 20070707
  Serious: Yes (Hospitalization)
  Sender: FDA-Public Use
  Company Number: US-AMGEN-US212928

PATIENT
  Sex: Female

DRUGS (1)
  1. ENBREL [Suspect]
     Indication: RHEUMATOID ARTHRITIS
     Route: 058
     Dates: start: 20031201

REACTIONS (4)
  - DEVICE RELATED INFECTION [None]
  - ERYTHEMA [None]
  - LOSS OF CONSCIOUSNESS [None]
  - RHEUMATOID ARTHRITIS [None]
